FAERS Safety Report 4331235-4 (Version None)
Quarter: 2004Q2

REPORT INFORMATION
  Report Type: 
  Country: None (occurrence: None)
  Receive Date: 20040405
  Receipt Date: 20040329
  Transmission Date: 20050107
  Serious: Yes (Life-Threatening)
  Sender: FDA-Public Use
  Company Number: 200411314FR

PATIENT
  Age: 76 Year
  Sex: Female
  Weight: 85 kg

DRUGS (10)
  1. KETEK [Suspect]
     Indication: BRONCHITIS
     Route: 048
  2. SECTRAL [Suspect]
     Route: 048
  3. TAREG [Suspect]
     Route: 048
  4. ALLOPURINOL TAB [Suspect]
     Route: 048
  5. AMLODIPINE [Suspect]
     Route: 048
  6. LASIX [Concomitant]
     Route: 048
  7. GLUCOPHAGE [Concomitant]
     Route: 048
  8. DIAMICRON [Concomitant]
     Route: 048
  9. BRICANYL DOSIERAEROSOL [Concomitant]
     Indication: BRONCHITIS
  10. CORTICOSTEROIDS, DERMATOLOGICAL PREPARATIONS [Concomitant]
     Indication: BRONCHITIS

REACTIONS (10)
  - ACUTE RESPIRATORY DISTRESS SYNDROME [None]
  - DISTURBANCE IN ATTENTION [None]
  - ENTEROBACTER INFECTION [None]
  - HYPERKALAEMIA [None]
  - HYPOGLYCAEMIA [None]
  - MALNUTRITION [None]
  - PSEUDOMONAS INFECTION [None]
  - RENAL FAILURE ACUTE [None]
  - SHOCK [None]
  - STAPHYLOCOCCAL INFECTION [None]
